FAERS Safety Report 9846651 (Version 2)
Quarter: 2014Q1

REPORT INFORMATION
  Report Type: Spontaneous
  Country: IT (occurrence: IT)
  Receive Date: 20140127
  Receipt Date: 20140131
  Transmission Date: 20141002
  Serious: Yes (Other)
  Sender: FDA-Public Use
  Company Number: IT-ASTRAZENECA-2014SE05386

PATIENT
  Age: 14984 Day
  Sex: Female

DRUGS (2)
  1. SEROQUEL [Suspect]
     Indication: DRUG ABUSE
     Route: 048
     Dates: start: 20130917, end: 20130917
  2. RIVOTRIL [Suspect]
     Indication: DRUG ABUSE
     Dosage: 2.5 MG/ML ORAL DROPS, 10 ML 1 BOTTLE
     Route: 048
     Dates: start: 20130917, end: 20130917

REACTIONS (2)
  - Overdose [Unknown]
  - Sopor [Recovering/Resolving]
